FAERS Safety Report 8615597-5 (Version None)
Quarter: 2012Q3

REPORT INFORMATION
  Report Type: 
  Country: None (occurrence: None)
  Receive Date: 20120823
  Receipt Date: 20120814
  Transmission Date: 20120928
  Serious: Yes (Life-Threatening)
  Sender: FDA-Public Use
  Company Number: HN-009507513-1208HND006792

PATIENT

DRUGS (1)
  1. SINGULAIR [Suspect]
     Dosage: 5 MG, UNK
     Route: 048
     Dates: start: 20120101

REACTIONS (6)
  - SOMNOLENCE [None]
  - HEART RATE DECREASED [None]
  - RESUSCITATION [None]
  - LOSS OF CONSCIOUSNESS [None]
  - PALLOR [None]
  - SYNCOPE [None]
